FAERS Safety Report 8068122-4 (Version None)
Quarter: 2012Q1

REPORT INFORMATION
  Report Type: 
  Country: None (occurrence: None)
  Receive Date: 20120124
  Receipt Date: 20110922
  Transmission Date: 20120608
  Serious: No
  Sender: FDA-Public Use
  Company Number: US-AMGEN-USASP2011049333

PATIENT

DRUGS (3)
  1. CALCIUM [Concomitant]
  2. VITAMIN D [Concomitant]
  3. XGEVA [Suspect]
     Indication: PRODUCT USED FOR UNKNOWN INDICATION
     Dosage: UNK

REACTIONS (1)
  - BLOOD CALCIUM DECREASED [None]
